FAERS Safety Report 9512183 (Version 3)
Quarter: 2014Q1

REPORT INFORMATION
  Report Type: Spontaneous
  Country: JP (occurrence: JP)
  Receive Date: 20130910
  Receipt Date: 20140212
  Transmission Date: 20141002
  Serious: Yes (Hospitalization)
  Sender: FDA-Public Use
  Company Number: JP-JNJFOC-20130903283

PATIENT
  Age: 85 Year
  Sex: Female
  Weight: 43 kg

DRUGS (6)
  1. XARELTO [Suspect]
     Indication: CEREBROVASCULAR ACCIDENT PROPHYLAXIS
     Route: 048
     Dates: start: 20130618, end: 20130823
  2. XARELTO [Suspect]
     Indication: ATRIAL FIBRILLATION
     Route: 048
     Dates: start: 20130618, end: 20130823
  3. WARFARIN [Concomitant]
     Route: 048
     Dates: start: 20130302, end: 20130618
  4. LANIRAPID [Concomitant]
     Route: 048
     Dates: start: 20130302
  5. FAMOTIDINE [Concomitant]
     Route: 048
     Dates: start: 20130302
  6. LIVALO [Concomitant]
     Route: 048
     Dates: start: 20130302

REACTIONS (1)
  - Interstitial lung disease [Recovered/Resolved]
